FAERS Safety Report 16575643 (Version 1)
Quarter: 2019Q3

REPORT INFORMATION
  Report Type: Spontaneous
  Country: BE (occurrence: BE)
  Receive Date: 20190716
  Receipt Date: 20190716
  Transmission Date: 20191004
  Serious: Yes (Other)
  Sender: FDA-Public Use
  Company Number: BE-ROCHE-2355841

PATIENT
  Age: 38 Year
  Sex: Female

DRUGS (1)
  1. RITUXIMAB. [Suspect]
     Active Substance: RITUXIMAB
     Indication: THROMBOTIC THROMBOCYTOPENIC PURPURA
     Dosage: UNK
     Route: 041

REACTIONS (3)
  - ADAMTS13 activity decreased [Unknown]
  - Angioedema [Unknown]
  - Serum sickness [Unknown]
